FAERS Safety Report 13933055 (Version 1)
Quarter: 2017Q3

REPORT INFORMATION
  Report Type: Report from Study
  Country: US (occurrence: US)
  Receive Date: 20170904
  Receipt Date: 20170904
  Transmission Date: 20171127
  Serious: Yes (Death)
  Sender: FDA-Public Use
  Company Number: US-PFIZER INC-2017375791

PATIENT
  Age: 54 Year
  Sex: Male

DRUGS (4)
  1. HEROIN [Suspect]
     Active Substance: DIAMORPHINE
     Dosage: UNK
  2. MORPHINE [Concomitant]
     Active Substance: MORPHINE
  3. FENTANYL CITRATE. [Suspect]
     Active Substance: FENTANYL CITRATE
     Dosage: UNK
  4. CODEINE [Concomitant]
     Active Substance: CODEINE

REACTIONS (1)
  - Toxicity to various agents [Fatal]
